FAERS Safety Report 7916181-9 (Version None)
Quarter: 2011Q4

REPORT INFORMATION
  Report Type: 
  Country: None (occurrence: None)
  Receive Date: 20111116
  Receipt Date: 20110210
  Transmission Date: 20120403
  Serious: Yes (Other)
  Sender: FDA-Public Use
  Company Number: US-BAYER-201033879NA

PATIENT
  Sex: Male
  Weight: 106.58 kg

DRUGS (26)
  1. OPTIMARK [Suspect]
     Indication: SCAN
  2. NEPHROVITE [VIT C,VIT H,B5,B12,B9,B3,B6,B2,B1 HCL] [Concomitant]
  3. LISINOPRIL [Concomitant]
     Dosage: UNK
  4. MAGNEVIST [Suspect]
     Indication: IMAGING PROCEDURE
  5. MYCOPHENOLATE MOFETIL (CELLCEPT) [Concomitant]
     Dosage: UNK
     Dates: start: 20080101
  6. NORVASC [Concomitant]
     Dosage: UNK
  7. OMNISCAN [Suspect]
     Indication: IMAGING PROCEDURE
  8. CYCLOSPORINE [Concomitant]
     Dosage: UNK
     Dates: start: 20080101
  9. PREDNISONE [Concomitant]
     Dosage: UNK
     Dates: start: 20000101, end: 20010101
  10. SIMVASTATIN [Concomitant]
     Dosage: UNK
     Dates: start: 20090101
  11. TRENTAL [Concomitant]
  12. EPOGEN [Concomitant]
     Dosage: UNK
     Dates: start: 20000101
  13. ALLOPURINOL [Concomitant]
  14. AMLODIPINE [Concomitant]
  15. WARFARIN SODIUM [Concomitant]
     Dosage: UNK
     Dates: start: 19970101
  16. CLONAZEPAM [Concomitant]
  17. IRON [CITRIC ACID,FERROUS SULFATE] [Concomitant]
     Dosage: UNK
     Dates: start: 20000101
  18. AMIODARONE HCL [Concomitant]
  19. CYTOXAN [Concomitant]
     Dosage: UNK
     Dates: start: 20000101, end: 20010101
  20. MULTIHANCE [Suspect]
     Indication: IMAGING PROCEDURE
  21. PROHANCE [Suspect]
     Indication: IMAGING PROCEDURE
  22. CARVEDILOL [Concomitant]
  23. FUROSEMIDE [Concomitant]
  24. SIMVASTATIN [Concomitant]
     Dosage: UNK
     Dates: start: 19990101, end: 20000101
  25. GLIPIZIDE [Concomitant]
     Dosage: UNK
     Dates: start: 20000101, end: 20080101
  26. LOPRESSOR [Concomitant]
     Dosage: UNK

REACTIONS (25)
  - GAIT DISTURBANCE [None]
  - BONE PAIN [None]
  - DRY SKIN [None]
  - MOBILITY DECREASED [None]
  - SKIN PLAQUE [None]
  - SKIN HYPERTROPHY [None]
  - SKIN LESION [None]
  - SKIN BURNING SENSATION [None]
  - PAIN [None]
  - SKIN TIGHTNESS [None]
  - PRURITUS [None]
  - NEPHROGENIC SYSTEMIC FIBROSIS [None]
  - OEDEMA PERIPHERAL [None]
  - EXCORIATION [None]
  - JOINT RANGE OF MOTION DECREASED [None]
  - PAIN IN EXTREMITY [None]
  - ARTHRALGIA [None]
  - FALL [None]
  - GENERAL PHYSICAL HEALTH DETERIORATION [None]
  - SKIN INDURATION [None]
  - RASH ERYTHEMATOUS [None]
  - HEAD INJURY [None]
  - SKIN DISCOLOURATION [None]
  - SKIN EXFOLIATION [None]
  - SKIN HYPERPIGMENTATION [None]
